FAERS Safety Report 16382936 (Version 1)
Quarter: 2019Q2

REPORT INFORMATION
  Report Type: Spontaneous
  Country: US (occurrence: US)
  Receive Date: 20190603
  Receipt Date: 20190603
  Transmission Date: 20190711
  Serious: No
  Sender: FDA-Public Use
  Company Number: PHEH2019US023033

PATIENT
  Sex: Female

DRUGS (4)
  1. SOFOSBUVIR W/VELPATASVIR [Concomitant]
     Active Substance: SOFOSBUVIR\VELPATASVIR
     Indication: PRODUCT USED FOR UNKNOWN INDICATION
     Dosage: UNK
     Route: 065
  2. RIBAVIRIN. [Suspect]
     Active Substance: RIBAVIRIN
     Indication: HEPATITIS C
     Dosage: 3 DF, BID
     Route: 048
     Dates: start: 201904
  3. IBUPROFEN. [Concomitant]
     Active Substance: IBUPROFEN
     Indication: PRODUCT USED FOR UNKNOWN INDICATION
     Dosage: UNK
     Route: 065
  4. VITAMIN E [Concomitant]
     Active Substance: .ALPHA.-TOCOPHEROL
     Indication: PRODUCT USED FOR UNKNOWN INDICATION
     Dosage: UNK
     Route: 065

REACTIONS (5)
  - Headache [Recovered/Resolved with Sequelae]
  - Dyspepsia [Recovered/Resolved]
  - Frequent bowel movements [Not Recovered/Not Resolved]
  - Gastrooesophageal reflux disease [Recovered/Resolved]
  - Pollakiuria [Not Recovered/Not Resolved]
